FAERS Safety Report 7569617-X (Version None)
Quarter: 2011Q2

REPORT INFORMATION
  Report Type: 
  Country: None (occurrence: None)
  Receive Date: 20110621
  Receipt Date: 20110621
  Transmission Date: 20111010
  Serious: No
  Sender: FDA-Public Use
  Company Number: None

PATIENT
  Sex: Female
  Weight: 82.1011 kg

DRUGS (2)
  1. PROTONIX [Suspect]
     Dosage: 1 QD PO N/A
     Route: 048
  2. PT HAS TRIED GENERIC + OTC PPI'S - LIST NOT AVAILABLE [Suspect]

REACTIONS (3)
  - CHEST PAIN [None]
  - DRUG INEFFECTIVE [None]
  - DYSPEPSIA [None]
